FAERS Safety Report 15158117 (Version 10)
Quarter: 2019Q4

REPORT INFORMATION
  Report Type: Spontaneous
  Country: GB (occurrence: GB)
  Receive Date: 20180718
  Receipt Date: 20191017
  Transmission Date: 20200122
  Serious: Yes (Life-Threatening, Hospitalization, Other)
  Sender: FDA-Public Use
  Company Number: GB-MYLANLABS-2018M1051243

PATIENT
  Age: 29 Year
  Sex: Female

DRUGS (32)
  1. EPINEPHRINE. [Suspect]
     Active Substance: EPINEPHRINE
     Indication: ASTHMA
     Dosage: 350 MICROGRAM, QD (DILUTED IN SMALL INCREMENTS)
     Route: 065
  2. SALBUTAMOL [Suspect]
     Active Substance: ALBUTEROL
     Dosage: 15 MILLIGRAM, QD (NEBULIZED, 2 BOLUSES)
     Route: 040
  3. PREDNISOLONE. [Suspect]
     Active Substance: PREDNISOLONE
     Dosage: 30 MILLIGRAM, QD
     Route: 048
  4. SEVOFLURANE. [Suspect]
     Active Substance: SEVOFLURANE
     Indication: ASTHMA
     Dosage: 8 PERCENT, QD
     Route: 055
  5. PREDNISOLONE. [Concomitant]
     Active Substance: PREDNISOLONE
     Indication: ASTHMA
     Dosage: 30 MILLIGRAM
     Route: 065
  6. THEOPHYLLINE [Suspect]
     Active Substance: THEOPHYLLINE ANHYDROUS
     Indication: ASTHMA
     Dosage: UNK
     Route: 065
  7. SALBUTAMOL [Suspect]
     Active Substance: ALBUTEROL
     Dosage: 12.3 MILLIGRAM (FORM-INTRAVENOUS INFUSION)
     Route: 042
  8. SALBUTAMOL [Suspect]
     Active Substance: ALBUTEROL
     Dosage: 250 MILLIGRAM, QD
     Route: 042
  9. PREDNISOLONE. [Suspect]
     Active Substance: PREDNISOLONE
     Dosage: 30 MILLIGRAM
     Route: 048
  10. IPRATROPIUM [Suspect]
     Active Substance: IPRATROPIUM
     Indication: ASTHMA
     Dosage: 0.5 MILLIGRAM
     Route: 065
  11. IPRATROPIUM [Suspect]
     Active Substance: IPRATROPIUM
     Dosage: 0.5 MILLIGRAM (NEBULISATION)
     Route: 065
  12. ATROVENT [Suspect]
     Active Substance: IPRATROPIUM BROMIDE
     Dosage: 0.5 MILLIGRAM, QD (NEBULISATION)
     Route: 065
  13. MONTELUKAST [Suspect]
     Active Substance: MONTELUKAST SODIUM
     Indication: ASTHMA
     Dosage: UNK
     Route: 048
  14. SALBUTAMOL [Suspect]
     Active Substance: ALBUTEROL
     Dosage: UNK
  15. SALBUTAMOL [Suspect]
     Active Substance: ALBUTEROL
     Dosage: UNK
     Route: 042
  16. KETAMINE [Suspect]
     Active Substance: KETAMINE
     Indication: ASTHMA
     Dosage: UNK (INCREASED TO 45 MICROG/KG/MIN)
     Route: 042
  17. MAGNESIUM [Suspect]
     Active Substance: MAGNESIUM
     Dosage: UNK
  18. SALBUTAMOL [Suspect]
     Active Substance: ALBUTEROL
     Dosage: 15 MG, UNK (NEBULISATION- IN REPEATED DOSES)
     Route: 042
  19. SEVOFLURANE. [Suspect]
     Active Substance: SEVOFLURANE
     Dosage: UNK
     Route: 055
  20. ATROVENT [Suspect]
     Active Substance: IPRATROPIUM BROMIDE
     Indication: ASTHMA
     Dosage: 0.5 MILLIGRAM
     Route: 005
  21. HYDROCORTISONE. [Suspect]
     Active Substance: HYDROCORTISONE
     Indication: ASTHMA
     Dosage: 100 MILLIGRAM, QD
     Route: 042
  22. MAGNESIUM [Suspect]
     Active Substance: MAGNESIUM
     Indication: ASTHMA
     Dosage: 2 GRAM, QD
     Route: 042
  23. MAGNESIUM SULFATE. [Concomitant]
     Active Substance: MAGNESIUM SULFATE
     Indication: ASTHMA
     Dosage: UNK
  24. SALBUTAMOL [Suspect]
     Active Substance: ALBUTEROL
     Indication: ASTHMA
     Dosage: 250 MICROGRAM, QD (2 BOLUSES)
     Route: 040
  25. SALBUTAMOL [Suspect]
     Active Substance: ALBUTEROL
     Dosage: 0.5 MILLIGRAM, QD
     Route: 042
  26. MONTELUKAST [Concomitant]
     Active Substance: MONTELUKAST SODIUM
     Indication: ASTHMA
     Dosage: UNK
     Route: 065
  27. EPINEPHRINE. [Suspect]
     Active Substance: EPINEPHRINE
     Dosage: UNK
     Route: 065
  28. MONTELUKAST [Suspect]
     Active Substance: MONTELUKAST SODIUM
     Dosage: UNK
     Route: 065
  29. SALBUTAMOL [Suspect]
     Active Substance: ALBUTEROL
     Dosage: UNK (NEBULISER)
     Route: 065
  30. SALBUTAMOL [Suspect]
     Active Substance: ALBUTEROL
     Dosage: 15 MILLIGRAM (NEBULISER)
     Route: 042
  31. PREDNISOLONE. [Suspect]
     Active Substance: PREDNISOLONE
     Indication: ASTHMA
     Dosage: UNK
     Route: 048
  32. THEOPHYLLINE [Concomitant]
     Active Substance: THEOPHYLLINE ANHYDROUS
     Indication: ASTHMA
     Dosage: UNK
     Route: 065

REACTIONS (20)
  - Dyspnoea [Recovering/Resolving]
  - PCO2 increased [Recovering/Resolving]
  - Airway peak pressure increased [Recovering/Resolving]
  - Drug ineffective [Unknown]
  - Respiratory acidosis [Recovering/Resolving]
  - Cyanosis [Recovering/Resolving]
  - Wheezing [Recovering/Resolving]
  - Blood lactic acid increased [Recovering/Resolving]
  - Blood pH decreased [Recovering/Resolving]
  - Respiratory rate increased [Recovering/Resolving]
  - Hypercapnia [Recovering/Resolving]
  - PO2 decreased [Recovering/Resolving]
  - Asthma [Recovered/Resolved]
  - Lung hyperinflation [Recovering/Resolving]
  - Blood bicarbonate decreased [Recovering/Resolving]
  - Oxygen saturation decreased [Recovering/Resolving]
  - Acute respiratory failure [Recovered/Resolved]
  - Bronchospasm [Recovering/Resolving]
  - Status asthmaticus [Recovered/Resolved]
  - Off label use [Unknown]
